APPROVED DRUG PRODUCT: THIOTHIXENE HYDROCHLORIDE
Active Ingredient: THIOTHIXENE HYDROCHLORIDE
Strength: EQ 1MG BASE/ML
Dosage Form/Route: CONCENTRATE;ORAL
Application: A071917 | Product #001
Applicant: PACO RESEARCH CORP
Approved: Sep 20, 1989 | RLD: No | RS: No | Type: DISCN